FAERS Safety Report 10747877 (Version 1)
Quarter: 2015Q1

REPORT INFORMATION
  Report Type: Spontaneous
  Country: CN (occurrence: None)
  Receive Date: 20150127
  Receipt Date: 20150127
  Transmission Date: 20150721
  Serious: Yes (Hospitalization)
  Sender: FDA-Public Use
  Company Number: FK201500314

PATIENT
  Age: 44 Year
  Sex: Female

DRUGS (1)
  1. BLEOMYCIN [Suspect]
     Active Substance: BLEOMYCIN SULFATE
     Indication: HAEMANGIOMA OF LIVER

REACTIONS (4)
  - Cholangitis sclerosing [None]
  - Cholecystitis [None]
  - Jaundice cholestatic [None]
  - Cholelithiasis [None]
